FAERS Safety Report 15010165 (Version 4)
Quarter: 2018Q3

REPORT INFORMATION
  Report Type: Spontaneous
  Country: SK (occurrence: SK)
  Receive Date: 20180614
  Receipt Date: 20180725
  Transmission Date: 20181010
  Serious: Yes (Other)
  Sender: FDA-Public Use
  Company Number: SK-BAUSCH-BL-2018-016392

PATIENT
  Age: 15 Week

DRUGS (4)
  1. CEFTRIAXONE. [Suspect]
     Active Substance: CEFTRIAXONE
     Indication: TICK-BORNE VIRAL ENCEPHALITIS
     Route: 065
  2. DEXAMETHASONE. [Suspect]
     Active Substance: DEXAMETHASONE
     Indication: TICK-BORNE VIRAL ENCEPHALITIS
     Route: 065
  3. GENTAMICIN. [Suspect]
     Active Substance: GENTAMICIN
     Indication: TICK-BORNE VIRAL ENCEPHALITIS
     Route: 065
  4. HERPESIN [Suspect]
     Active Substance: ACYCLOVIR
     Indication: TICK-BORNE VIRAL ENCEPHALITIS
     Route: 065

REACTIONS (3)
  - Seizure [Recovered/Resolved]
  - Tick-borne viral encephalitis [Recovered/Resolved]
  - Condition aggravated [Recovered/Resolved]
